FAERS Safety Report 25426672 (Version 1)
Quarter: 2025Q2

REPORT INFORMATION
  Report Type: Spontaneous
  Country: CH (occurrence: CH)
  Receive Date: 20250612
  Receipt Date: 20250612
  Transmission Date: 20250716
  Serious: Yes (Other)
  Sender: ASTELLAS
  Company Number: None

PATIENT
  Age: 65 Year
  Sex: Female

DRUGS (12)
  1. MIRABEGRON [Suspect]
     Active Substance: MIRABEGRON
     Indication: Product used for unknown indication
     Dosage: 1X/D
     Route: 065
     Dates: start: 20250504
  2. HEPARIN [Suspect]
     Active Substance: HEPARIN SODIUM
     Indication: Product used for unknown indication
     Route: 042
     Dates: start: 20250424, end: 20250506
  3. DIFLUCAN [Suspect]
     Active Substance: FLUCONAZOLE
     Indication: Product used for unknown indication
     Dosage: 1X/D
     Route: 042
     Dates: start: 20250420, end: 20250509
  4. IOHEXOL [Suspect]
     Active Substance: IOHEXOL
     Indication: Scan with contrast
     Route: 065
     Dates: start: 20250427, end: 20250427
  5. IOHEXOL [Suspect]
     Active Substance: IOHEXOL
     Route: 065
     Dates: start: 20250505, end: 20250505
  6. ENOXAPARIN SODIUM [Suspect]
     Active Substance: ENOXAPARIN SODIUM
     Indication: Product used for unknown indication
     Dosage: 2X/D
     Route: 058
     Dates: start: 20250506, end: 20250513
  7. PIPERACILLIN AND TAZOBACTAM [Suspect]
     Active Substance: PIPERACILLIN SODIUM\TAZOBACTAM SODIUM
     Indication: Product used for unknown indication
     Dosage: 3X/DAY
     Route: 042
     Dates: start: 20250423, end: 20250509
  8. ESOMEPRAZOLE [Suspect]
     Active Substance: ESOMEPRAZOLE
     Indication: Product used for unknown indication
     Dosage: 1X/DAY
     Route: 065
     Dates: start: 20250420, end: 20250513
  9. IBUPROFEN [Suspect]
     Active Substance: IBUPROFEN
     Indication: Product used for unknown indication
     Dosage: 3X/DAY
     Route: 065
     Dates: start: 20250424, end: 20250509
  10. DAFALGAN [Suspect]
     Active Substance: ACETAMINOPHEN
     Indication: Product used for unknown indication
     Dosage: 3X/DAY
     Route: 065
     Dates: start: 20250423
  11. TRAMADOL [Suspect]
     Active Substance: TRAMADOL
     Indication: Product used for unknown indication
     Route: 065
     Dates: start: 20250505, end: 20250505
  12. TRAMADOL [Suspect]
     Active Substance: TRAMADOL
     Route: 065
     Dates: start: 202505, end: 202505

REACTIONS (2)
  - Rash maculo-papular [Recovering/Resolving]
  - Eosinophilia [Recovering/Resolving]

NARRATIVE: CASE EVENT DATE: 20250506
